FAERS Safety Report 6730784-9 (Version None)
Quarter: 2010Q2

REPORT INFORMATION
  Report Type: 
  Country: None (occurrence: None)
  Receive Date: 20100518
  Receipt Date: 20100512
  Transmission Date: 20101027
  Serious: Yes (Other)
  Sender: FDA-Public Use
  Company Number: GXKR2010DE05292

PATIENT
  Age: 40 Year
  Sex: Female
  Weight: 67 kg

DRUGS (20)
  1. PREDNISOLONE [Suspect]
     Dosage: 1 MG, QD
     Route: 048
     Dates: start: 20070905, end: 20070915
  2. PREDNISOLUT [Suspect]
     Dosage: 1 MG, QD
     Route: 042
     Dates: start: 20070827, end: 20070831
  3. PREDNI [Suspect]
     Dosage: 2 MG, QD
     Route: 042
     Dates: start: 20070901, end: 20070904
  4. PANTOZOL [Concomitant]
  5. PERENTEROL                              /GFR/ [Concomitant]
  6. IMUREK                                  /GFR/ [Concomitant]
  7. NOVALGIN                                /SCH/ [Concomitant]
  8. HYPERICUM HERBA D20 [Concomitant]
  9. POVIDONE IODINE [Concomitant]
  10. DECORTIN-H [Concomitant]
  11. PREDNISOLUT [Concomitant]
  12. APIS BELLADONNA INJECT [Concomitant]
  13. STANNUM D8 [Concomitant]
  14. BRYOPHYLLUM 50% [Concomitant]
  15. STIBIUM MET PRAEP D8 [Concomitant]
  16. CINIS EQUISET ARV D6 [Concomitant]
  17. MANDRAGORA COMP [Concomitant]
  18. APIS MELLIFICA D8 [Concomitant]
  19. CARUM CARVI AETH DEC D1URT [Concomitant]
  20. COLCHICUM RH D3 [Concomitant]

REACTIONS (3)
  - AGITATION [None]
  - PSYCHOTIC DISORDER [None]
  - RESTLESSNESS [None]
